FAERS Safety Report 5894797-1 (Version None)
Quarter: 2008Q3

REPORT INFORMATION
  Report Type: 
  Country: None (occurrence: None)
  Receive Date: 20080922
  Receipt Date: 20080911
  Transmission Date: 20090109
  Serious: Yes (Hospitalization)
  Sender: FDA-Public Use
  Company Number: 2008AL010506

PATIENT
  Age: 72 Year
  Sex: Male

DRUGS (6)
  1. HYDROCORTISONE 2.5% CREAM [Suspect]
     Dosage: 20 MG; BID; PO
     Route: 048
     Dates: start: 19760701
  2. ACETYLSALICYLIC ACID SRT [Concomitant]
  3. RAMIPRIL [Concomitant]
  4. LIPITOR [Concomitant]
  5. CLOPIDOGREL [Concomitant]
  6. FLUDROCORTISONE ACETATE [Concomitant]

REACTIONS (3)
  - BLOOD GLUCOSE INCREASED [None]
  - MALAISE [None]
  - PYREXIA [None]
